FAERS Safety Report 7070342-2 (Version None)
Quarter: 2010Q4

REPORT INFORMATION
  Report Type: 
  Country: None (occurrence: None)
  Receive Date: 20101028
  Receipt Date: 20101019
  Transmission Date: 20110411
  Serious: No
  Sender: FDA-Public Use
  Company Number: US-WYE-H18251910

PATIENT
  Age: 20 Year
  Sex: Female
  Weight: 51.3 kg

DRUGS (1)
  1. NORPLANT SYSTEM [Suspect]
     Indication: CONTRACEPTION
     Dosage: UNKNOWN
     Route: 059
     Dates: start: 20080101

REACTIONS (2)
  - MENSTRUATION IRREGULAR [None]
  - WEIGHT INCREASED [None]
